FAERS Safety Report 4757403-5 (Version None)
Quarter: 2005Q3

REPORT INFORMATION
  Report Type: 
  Country: None (occurrence: None)
  Receive Date: 20050831
  Receipt Date: 20050818
  Transmission Date: 20060218
  Serious: Yes (Hospitalization)
  Sender: FDA-Public Use
  Company Number: GB-GLAXOSMITHKLINE-B0391407A

PATIENT
  Age: 43 Year
  Sex: Male

DRUGS (7)
  1. PARACETAMOL [Suspect]
     Dosage: 16G PER DAY
     Route: 048
  2. AMLODIPINE [Suspect]
     Dosage: 10MG PER DAY
     Route: 048
  3. FLUOXETINE [Suspect]
     Dosage: 600MG PER DAY
     Route: 048
  4. FOLIC ACID [Suspect]
  5. ASPIRIN [Suspect]
     Dosage: 7.5G PER DAY
     Route: 065
  6. CITALOPRAM [Suspect]
     Dosage: 250MG PER DAY
     Route: 048
  7. PERINDOPRIL [Suspect]
     Dosage: 120MG PER DAY
     Route: 065

REACTIONS (6)
  - HYPOKALAEMIA [None]
  - HYPOTENSION [None]
  - INTENTIONAL MISUSE [None]
  - METABOLIC ACIDOSIS [None]
  - RENAL FAILURE [None]
  - URINARY RETENTION [None]
